FAERS Safety Report 25006172 (Version 2)
Quarter: 2025Q1

REPORT INFORMATION
  Report Type: Report from Study
  Country: CA (occurrence: CA)
  Receive Date: 20250224
  Receipt Date: 20250306
  Transmission Date: 20250408
  Serious: Yes (Other)
  Sender: HLS THERAPEUTICS
  Company Number: CA-HLS-202500522

PATIENT
  Age: 55 Year
  Sex: Female

DRUGS (1)
  1. CLOZARIL [Suspect]
     Active Substance: CLOZAPINE
     Indication: Product used for unknown indication
     Route: 048
     Dates: start: 20220701

REACTIONS (6)
  - Neutrophil count decreased [Recovered/Resolved]
  - Anaemia [Unknown]
  - Chronic kidney disease [Unknown]
  - Hypertension [Unknown]
  - Hypothyroidism [Unknown]
  - Toothache [Unknown]

NARRATIVE: CASE EVENT DATE: 20250219
